FAERS Safety Report 9753681 (Version 1)
Quarter: 2013Q4

REPORT INFORMATION
  Report Type: Spontaneous
  Country: US (occurrence: US)
  Receive Date: 20131213
  Receipt Date: 20131213
  Transmission Date: 20140711
  Serious: No
  Sender: FDA-Public Use
  Company Number: US-GILEAD-2009-0026032

PATIENT
  Sex: Male
  Weight: 91.63 kg

DRUGS (4)
  1. LETAIRIS [Suspect]
     Indication: PULMONARY ARTERIAL HYPERTENSION
     Route: 048
     Dates: start: 20091112
  2. GLIPIZIDE [Concomitant]
  3. NADOLOL [Concomitant]
  4. METFORMIN HCL [Concomitant]

REACTIONS (1)
  - Abdominal pain [Unknown]
